FAERS Safety Report 21664538 (Version 1)
Quarter: 2022Q4

REPORT INFORMATION
  Report Type: Spontaneous
  Country: US (occurrence: None)
  Receive Date: 20221129
  Receipt Date: 20221129
  Transmission Date: 20230112
  Serious: Yes (Hospitalization)
  Sender: FDA-Public Use
  Company Number: None

PATIENT
  Sex: Female

DRUGS (6)
  1. AVONEX PEN [Suspect]
     Active Substance: INTERFERON BETA-1A
     Indication: Multiple sclerosis
     Dosage: OTHER STRENGTH : 30MCG/0.5ML;?OTHER QUANTITY : 30MCG/0.5ML;?INJECT 1 PEN IN THE MUSCLE INTO THE SHOU
     Route: 030
     Dates: start: 20190207
  2. LISINOPRIL [Concomitant]
     Active Substance: LISINOPRIL
  3. MULTIVITAMIN TAB WOMENS [Concomitant]
  4. PREDNISONE [Concomitant]
     Active Substance: PREDNISONE
  5. SERTRALINE HYDROCHLORIDE [Concomitant]
     Active Substance: SERTRALINE HYDROCHLORIDE
  6. VITAMIN D CAP [Concomitant]

REACTIONS (2)
  - Platelet count decreased [None]
  - Therapy cessation [None]
